FAERS Safety Report 9891989 (Version 1)
Quarter: 2014Q1

REPORT INFORMATION
  Report Type: Spontaneous
  Country: FR (occurrence: FR)
  Receive Date: 20140212
  Receipt Date: 20140212
  Transmission Date: 20141002
  Serious: Yes (Other)
  Sender: FDA-Public Use
  Company Number: FR-JNJFOC-20140203175

PATIENT
  Sex: Female

DRUGS (12)
  1. EPITOMAX [Suspect]
     Indication: EPILEPSY
     Route: 048
     Dates: end: 2013
  2. EPITOMAX [Suspect]
     Indication: EPILEPSY
     Route: 048
     Dates: start: 2013
  3. ZONEGRAN [Suspect]
     Indication: EPILEPSY
     Route: 065
  4. TEGRETOL LP [Suspect]
     Indication: EPILEPSY
     Route: 065
  5. DIAZEPAM [Suspect]
     Indication: EPILEPSY
     Route: 065
     Dates: end: 2013
  6. DIAZEPAM [Suspect]
     Indication: EPILEPSY
     Route: 065
     Dates: start: 2013
  7. ATARAX [Suspect]
     Indication: EPILEPSY
     Route: 065
     Dates: end: 2013
  8. NUREFLEX [Suspect]
     Indication: EPILEPSY
     Dosage: 200 AND 800 MG PER DAY
     Route: 065
     Dates: end: 2013
  9. EUPANTOL [Suspect]
     Indication: EPILEPSY
     Route: 065
     Dates: end: 2013
  10. NOZINAN [Suspect]
     Indication: EPILEPSY
     Route: 065
     Dates: end: 2013
  11. NOZINAN [Suspect]
     Indication: EPILEPSY
     Route: 065
     Dates: start: 2013
  12. LAROXYL [Suspect]
     Indication: PRODUCT USED FOR UNKNOWN INDICATION
     Dosage: 12.5-12.5-25 MG PER DAY
     Route: 065

REACTIONS (2)
  - Epilepsy [Unknown]
  - Exposure during pregnancy [Recovered/Resolved]
